FAERS Safety Report 13656198 (Version 2)
Quarter: 2017Q3

REPORT INFORMATION
  Report Type: Report from Study
  Country: DE (occurrence: DE)
  Receive Date: 20170615
  Receipt Date: 20170927
  Transmission Date: 20171127
  Serious: Yes (Hospitalization, Other)
  Sender: FDA-Public Use
  Company Number: PHHY2017DE051682

PATIENT
  Age: 62 Year
  Sex: Male
  Weight: 100 kg

DRUGS (6)
  1. COSENTYX [Suspect]
     Active Substance: SECUKINUMAB
     Indication: PSORIASIS
     Dosage: 300 MG, UNK/PER APPLICATION
     Route: 058
     Dates: start: 20160210
  2. FUROSEMIDE. [Concomitant]
     Active Substance: FUROSEMIDE
     Indication: PRODUCT USED FOR UNKNOWN INDICATION
     Dosage: 40 MG, UNK
     Route: 048
  3. IBUPROFEN. [Concomitant]
     Active Substance: IBUPROFEN
     Indication: BURSITIS
     Dosage: 800 MG, QD
     Route: 048
     Dates: start: 20170316
  4. COSENTYX [Suspect]
     Active Substance: SECUKINUMAB
     Dosage: 300 MG, UNK/PER APPLICATION
     Route: 058
     Dates: start: 20170308
  5. INDAPAMIDE. [Concomitant]
     Active Substance: INDAPAMIDE
     Indication: PRODUCT USED FOR UNKNOWN INDICATION
     Dosage: 2.5 MG, UNK
     Route: 048
  6. ALLOPURINOL. [Concomitant]
     Active Substance: ALLOPURINOL
     Indication: PRODUCT USED FOR UNKNOWN INDICATION
     Dosage: 300 MG, UNK
     Route: 048

REACTIONS (32)
  - Cardiac failure [Unknown]
  - Pneumonia [Unknown]
  - Platelet distribution width decreased [Unknown]
  - Blood urea increased [Unknown]
  - Dyspnoea exertional [Unknown]
  - Silent myocardial infarction [Unknown]
  - Angina pectoris [Unknown]
  - Protein total decreased [Unknown]
  - Osteoarthritis [Unknown]
  - Hypokalaemia [Unknown]
  - Vomiting [Unknown]
  - Gamma-glutamyltransferase increased [Unknown]
  - Oedema peripheral [Unknown]
  - Coronary artery disease [Recovering/Resolving]
  - Red blood cell count decreased [Unknown]
  - Bursitis [Recovering/Resolving]
  - Arthralgia [Unknown]
  - Acute myocardial infarction [Unknown]
  - Dyspnoea [Unknown]
  - Toxic neuropathy [Unknown]
  - Mean cell volume increased [Unknown]
  - Red cell distribution width increased [Unknown]
  - Thyroxine increased [Unknown]
  - Haemoglobin decreased [Unknown]
  - Coronary artery stenosis [Unknown]
  - Nausea [Unknown]
  - Cough [Unknown]
  - Gait disturbance [Unknown]
  - Arteriosclerosis coronary artery [Unknown]
  - Blood sodium decreased [Unknown]
  - Blood lactate dehydrogenase increased [Unknown]
  - Fibrin D dimer increased [Unknown]

NARRATIVE: CASE EVENT DATE: 20170401
